FAERS Safety Report 7108140-3 (Version None)
Quarter: 2010Q4

REPORT INFORMATION
  Report Type: 
  Country: None (occurrence: None)
  Receive Date: 20101115
  Receipt Date: 20101115
  Transmission Date: 20110411
  Serious: Yes (Hospitalization, Other)
  Sender: FDA-Public Use
  Company Number: None

PATIENT
  Age: 64 Year
  Sex: Female
  Weight: 93.441 kg

DRUGS (2)
  1. FOSAMAX [Suspect]
     Dosage: 70 MG WKLY PO
     Route: 048
     Dates: start: 20000101
  2. FOSAMAX [Suspect]
     Dosage: 70 MG WKLY PO
     Route: 048
     Dates: start: 20100101

REACTIONS (2)
  - FALL [None]
  - FEMUR FRACTURE [None]
